FAERS Safety Report 4472796-4 (Version None)
Quarter: 2004Q4

REPORT INFORMATION
  Report Type: 
  Country: None (occurrence: None)
  Receive Date: 20041013
  Receipt Date: 20041005
  Transmission Date: 20050328
  Serious: Yes (Other)
  Sender: FDA-Public Use
  Company Number: PHEH2004US10678

PATIENT
  Age: 75 Year
  Sex: Male

DRUGS (5)
  1. ZOMETA [Suspect]
     Indication: METASTASES TO BONE
     Dosage: 4 MG MONTHLY
     Route: 042
     Dates: start: 20040927
  2. HYDROCHLOROTHIAZIDE [Concomitant]
  3. A.A.S. [Concomitant]
  4. CALCIUM [Concomitant]
  5. MULTI-VITAMINS [Concomitant]

REACTIONS (1)
  - LOSS OF CONSCIOUSNESS [None]
